FAERS Safety Report 6717716-4 (Version None)
Quarter: 2010Q2

REPORT INFORMATION
  Report Type: 
  Country: None (occurrence: None)
  Receive Date: 20100503
  Receipt Date: 20100419
  Transmission Date: 20101027
  Serious: Yes (Hospitalization)
  Sender: FDA-Public Use
  Company Number: 233396J09USA

PATIENT
  Age: 28 Year

DRUGS (11)
  1. REBIF [Suspect]
     Indication: MULTIPLE SCLEROSIS
     Dosage: 8.8 MCG, 3 IN 1 WK, SUBCUTANEOUS
     Route: 058
     Dates: start: 20091116
  2. REMERON [Suspect]
     Dates: start: 20091120
  3. ANTI ANXIETY MEDICATIONS (ALL OTHER THERAPEUTIC PRODUCTS) [Concomitant]
  4. EFFEXOR [Concomitant]
  5. COUMADIN [Concomitant]
  6. GEODON [Concomitant]
  7. TRAZODONE HCL [Concomitant]
  8. XANAX [Concomitant]
  9. SOMA [Concomitant]
  10. VICODIN [Concomitant]
  11. PHYCHIATRIC MEDICATIONS (ANTIPSYCOTICS) [Concomitant]

REACTIONS (4)
  - EAR INFECTION [None]
  - OROPHARYNGEAL PAIN [None]
  - SUICIDAL IDEATION [None]
  - TREATMENT NONCOMPLIANCE [None]
